FAERS Safety Report 9169120 (Version 5)
Quarter: 2013Q2

REPORT INFORMATION
  Report Type: Spontaneous
  Country: JP (occurrence: JP)
  Receive Date: 20130318
  Receipt Date: 20130423
  Transmission Date: 20140414
  Serious: Yes (Other)
  Sender: FDA-Public Use
  Company Number: JP-PFIZER INC-2013045898

PATIENT
  Age: 63 Year
  Sex: Female
  Weight: 53.82 kg

DRUGS (15)
  1. CARDENALIN [Suspect]
     Dosage: 1 MG, DAILY
     Route: 048
     Dates: end: 20130201
  2. VFEND [Suspect]
     Indication: ASPERGILLUS INFECTION
     Dosage: 150 MG, 2X/DAY
     Route: 048
     Dates: start: 20130123, end: 20130211
  3. CONIEL [Suspect]
     Dosage: 8 MG, 1X/DAY
     Route: 048
     Dates: end: 20130206
  4. EQUA [Suspect]
     Dosage: UNK
     Route: 048
     Dates: start: 20130112, end: 20130125
  5. NEORAL [Suspect]
     Dosage: 75 MG, DAILY
     Route: 048
     Dates: start: 20130130, end: 20130212
  6. MEVALOTIN [Concomitant]
     Dosage: UNK
  7. PREDONINE [Concomitant]
     Dosage: UNK
  8. BAKTAR [Concomitant]
     Dosage: UNK
  9. ONE-ALPHA [Concomitant]
     Dosage: UNK
  10. TAKEPRON [Concomitant]
     Dosage: UNK
  11. BONALON [Concomitant]
     Dosage: UNK
  12. PURSENNID [Concomitant]
     Dosage: UNK
  13. BAYASPIRIN [Concomitant]
     Dosage: UNK
  14. MICARDIS [Concomitant]
     Dosage: UNK
  15. BASEN [Concomitant]
     Dosage: UNK

REACTIONS (5)
  - Oedema peripheral [Recovering/Resolving]
  - Glomerular filtration rate decreased [Recovered/Resolved]
  - Alanine aminotransferase increased [Recovered/Resolved]
  - Aspartate aminotransferase increased [Recovering/Resolving]
  - Blood lactate dehydrogenase increased [Recovered/Resolved]
